FAERS Safety Report 15333978 (Version 1)
Quarter: 2018Q3

REPORT INFORMATION
  Report Type: Spontaneous
  Country: US (occurrence: US)
  Receive Date: 20180825
  Receipt Date: 20180825
  Transmission Date: 20181010
  Serious: Yes (Life-Threatening)
  Sender: FDA-Public Use
  Company Number: None

PATIENT
  Age: 30 Year
  Sex: Female
  Weight: 58.97 kg

DRUGS (1)
  1. MIRENA [Suspect]
     Active Substance: LEVONORGESTREL
     Dates: start: 20090531, end: 20160330

REACTIONS (4)
  - Premature baby [None]
  - Pregnancy [None]
  - Maternal exposure before pregnancy [None]
  - Placenta accreta [None]

NARRATIVE: CASE EVENT DATE: 20171010
